FAERS Safety Report 9273088 (Version 1)
Quarter: 2013Q2

REPORT INFORMATION
  Report Type: Spontaneous
  Country: US (occurrence: US)
  Receive Date: 20130506
  Receipt Date: 20130506
  Transmission Date: 20140414
  Serious: No
  Sender: FDA-Public Use
  Company Number: US-AMGEN-USASP2013023670

PATIENT
  Age: 31 Year
  Sex: Female

DRUGS (4)
  1. ENBREL [Suspect]
     Indication: ARTHRITIS
     Dosage: 50 MG, QWK
     Route: 058
  2. CITALOPRAM [Concomitant]
     Dosage: 20 MG, QD
  3. FAMVIR                             /01226201/ [Concomitant]
     Dosage: 500 MG, AS NECESSARY
     Route: 048
  4. ZOFRAN                             /00955301/ [Concomitant]
     Dosage: 8 MG, TID

REACTIONS (7)
  - Injection site reaction [Unknown]
  - Injection site erythema [Unknown]
  - Injection site pruritus [Unknown]
  - Injection site pain [Unknown]
  - Injection site irritation [Unknown]
  - Injection site induration [Unknown]
  - Injection site urticaria [Unknown]
